FAERS Safety Report 9562235 (Version 1)
Quarter: 2013Q3

REPORT INFORMATION
  Report Type: Spontaneous
  Country: US (occurrence: None)
  Receive Date: 20130821
  Receipt Date: 20130821
  Transmission Date: 20140515
  Serious: No
  Sender: FDA-Public Use
  Company Number: 1000045319

PATIENT
  Age: 78 Year
  Sex: Female

DRUGS (12)
  1. TUDORZA PRESSAIR (ACLIDINIUM BROMIDE) (400 MICROGRAM, POWDER) [Suspect]
     Indication: EMPHYSEMA
     Dosage: 400 MCG (400 MCG, 1 IN 1 D), RESPIRATORY (INHALATION)
     Route: 055
     Dates: start: 20130515, end: 20130517
  2. FLUTICASONE [Concomitant]
  3. ZYRTEC (CETIRIZINE HYDROCHLORIDE) [Concomitant]
  4. AVAPRO (IRBESARTAN) [Concomitant]
  5. VITAMIN C [Concomitant]
  6. CRANBERRY EXTRACT [Concomitant]
  7. SYSTANE (POLYETHYLENE GLYCOL) [Concomitant]
  8. CO Q10 (UBIDECARENONE) [Concomitant]
  9. CALCIUM [Concomitant]
  10. MVI (VITAMINS NOS) [Concomitant]
  11. ASPIRIN (ACETYLSALICYLIC ACID) [Concomitant]
  12. FISH OIL [Concomitant]

REACTIONS (3)
  - Cough [None]
  - Increased upper airway secretion [None]
  - Wheezing [None]
